FAERS Safety Report 5640500-X (Version None)
Quarter: 2008Q1

REPORT INFORMATION
  Report Type: 
  Country: None (occurrence: None)
  Receive Date: 20080227
  Receipt Date: 20080121
  Transmission Date: 20080703
  Serious: Yes (Hospitalization)
  Sender: FDA-Public Use
  Company Number: US-BAXTER-2008BH000487

PATIENT
  Age: 31 Year
  Sex: Female
  Weight: 120 kg

DRUGS (1)
  1. HEPARIN SODIUM [Suspect]
     Indication: THROMBOSIS PROPHYLAXIS
     Route: 042
     Dates: start: 20080103, end: 20080103

REACTIONS (4)
  - ANAPHYLACTIC REACTION [None]
  - ANGIOEDEMA [None]
  - NAUSEA [None]
  - VOMITING [None]
